FAERS Safety Report 7701537-X (Version None)
Quarter: 2011Q3

REPORT INFORMATION
  Report Type: 
  Country: None (occurrence: None)
  Receive Date: 20110822
  Receipt Date: 20110817
  Transmission Date: 20111222
  Serious: Yes (Other)
  Sender: FDA-Public Use
  Company Number: NL-TEVA-274936ISR

PATIENT
  Sex: Male

DRUGS (7)
  1. HYDROCHLOROTHIAZIDE [Suspect]
     Dosage: 25 MILLIGRAM;
     Route: 048
     Dates: start: 20001101, end: 20070501
  2. AMLODIPINE [Suspect]
     Dosage: 5 MILLIGRAM;
     Route: 048
     Dates: start: 20040501, end: 20100101
  3. PERINDOPRIL [Suspect]
     Dosage: 8 MILLIGRAM;
     Route: 048
     Dates: start: 20080221
  4. GLIMEPIRIDE [Suspect]
     Indication: DIABETES MELLITUS
     Dosage: 3 MILLIGRAM;
     Route: 048
     Dates: start: 20060303
  5. HYDROCHLOROTHIAZIDE [Suspect]
     Dosage: 12.5 MILLIGRAM;
     Route: 048
     Dates: start: 20070501
  6. METFORMIN HYDROCHLORIDE [Suspect]
     Indication: DIABETES MELLITUS
     Dosage: 3000 MILLIGRAM; 2 TAB OF 500 MG 3 TIMES A DAY
     Route: 048
     Dates: start: 20040701
  7. AMLODIPINE [Suspect]
     Dosage: 10 MILLIGRAM;
     Route: 048
     Dates: start: 20100101

REACTIONS (1)
  - SKIN CANCER [None]
